FAERS Safety Report 17618089 (Version 2)
Quarter: 2020Q2

REPORT INFORMATION
  Report Type: Spontaneous
  Country: LT (occurrence: LT)
  Receive Date: 20200402
  Receipt Date: 20200414
  Transmission Date: 20200713
  Serious: Yes (Hospitalization)
  Sender: FDA-Public Use
  Company Number: LT-DSJP-DSE-2020-110625

PATIENT

DRUGS (2)
  1. BISOPROLOL VITABALANS [Concomitant]
     Indication: ARRHYTHMIA
     Dosage: 10 MG
     Route: 048
  2. OLMESARTAN MEDOXOMIL_AMLODIPINE_HYDROCHLOROTHIAZIDE [Suspect]
     Active Substance: AMLODIPINE\HYDROCHLOROTHIAZIDE\OLMESARTAN
     Indication: BLOOD PRESSURE INCREASED
     Dosage: 40/5/12.5 MG, QD
     Route: 048
     Dates: start: 20200220, end: 20200224

REACTIONS (3)
  - Bladder discomfort [Recovered/Resolved]
  - Bladder pain [Recovered/Resolved]
  - Blood urine [Recovered/Resolved]

NARRATIVE: CASE EVENT DATE: 202002
